FAERS Safety Report 6682427-0 (Version None)
Quarter: 2010Q2

REPORT INFORMATION
  Report Type: 
  Country: None (occurrence: None)
  Receive Date: 20100415
  Receipt Date: 20100412
  Transmission Date: 20101027
  Serious: Yes (Death)
  Sender: FDA-Public Use
  Company Number: US-ASTRAZENECA-2009SE14967

PATIENT
  Age: 33312 Day
  Sex: Female

DRUGS (4)
  1. SEROQUEL [Suspect]
     Indication: AGITATION
     Dosage: 25 MG AS NEED EVERY 6 HOURS.
     Route: 048
     Dates: start: 20080628
  2. TRAZODONE [Concomitant]
     Route: 048
     Dates: start: 20080701
  3. CYMBALTA [Concomitant]
     Dates: start: 20080701
  4. CYMBALTA [Concomitant]
     Dates: start: 20080702

REACTIONS (2)
  - DEMENTIA ALZHEIMER'S TYPE [None]
  - DIABETES MELLITUS [None]
